FAERS Safety Report 13508586 (Version 4)
Quarter: 2017Q4

REPORT INFORMATION
  Report Type: Spontaneous
  Country: US (occurrence: US)
  Receive Date: 20170503
  Receipt Date: 20171116
  Transmission Date: 20180320
  Serious: Yes (Other)
  Sender: FDA-Public Use
  Company Number: US-GLAXOSMITHKLINE-US2017GSK063516

PATIENT
  Sex: Female

DRUGS (1)
  1. LAMOTRIGINE. [Suspect]
     Active Substance: LAMOTRIGINE
     Indication: EPILEPSY

REACTIONS (8)
  - Myoclonus [Unknown]
  - Seizure [Unknown]
  - Speech disorder [Unknown]
  - Product substitution issue [Unknown]
  - Drug level changed [Unknown]
  - Drug ineffective [Unknown]
  - Drug effect incomplete [Unknown]
  - Therapeutic response changed [Unknown]
